FAERS Safety Report 17099068 (Version 1)
Quarter: 2019Q4

REPORT INFORMATION
  Report Type: Spontaneous
  Country: US (occurrence: US)
  Receive Date: 20191105
  Receipt Date: 20191105
  Transmission Date: 20200122
  Serious: Yes (Hospitalization)
  Sender: FDA-Public Use
  Company Number: None

PATIENT
  Age: 73 Year
  Sex: Male
  Weight: 88.9 kg

DRUGS (1)
  1. ALBUTEROL. [Suspect]
     Active Substance: ALBUTEROL
     Indication: HYPERKALAEMIA
     Dates: start: 20191029, end: 20191029

REACTIONS (3)
  - Hyperkalaemia [None]
  - Angina pectoris [None]
  - Acute myocardial infarction [None]

NARRATIVE: CASE EVENT DATE: 20191030
